FAERS Safety Report 23195588 (Version 4)
Quarter: 2025Q1

REPORT INFORMATION
  Report Type: Spontaneous
  Country: US (occurrence: US)
  Receive Date: 20231117
  Receipt Date: 20250114
  Transmission Date: 20250409
  Serious: Yes (Hospitalization, Other)
  Sender: SANOFI AVENTIS
  Company Number: US-SA-2023SA355919

PATIENT
  Age: 87 Year
  Sex: Male

DRUGS (2)
  1. DUPIXENT [Suspect]
     Active Substance: DUPILUMAB
     Indication: Asthma
     Route: 058
     Dates: start: 202310, end: 202310
  2. DUPIXENT [Suspect]
     Active Substance: DUPILUMAB
     Dosage: 300 MG, QOW
     Route: 058
     Dates: start: 2023

REACTIONS (7)
  - Arrhythmia [Unknown]
  - Back pain [Unknown]
  - Heart rate increased [Recovered/Resolved]
  - Anxiety [Unknown]
  - Cough [Unknown]
  - Decreased appetite [Unknown]
  - Weight decreased [Unknown]
